FAERS Safety Report 8857421 (Version 4)
Quarter: 2013Q2

REPORT INFORMATION
  Report Type: Spontaneous
  Country: US (occurrence: US)
  Receive Date: 20121024
  Receipt Date: 20130405
  Transmission Date: 20140414
  Serious: Yes (Hospitalization, Other)
  Sender: FDA-Public Use
  Company Number: US-009507513-1202USA03515

PATIENT
  Sex: Female
  Weight: 83.1 kg

DRUGS (8)
  1. FOSAMAX [Suspect]
     Indication: OSTEOPOROSIS
     Dosage: 70 MG, QW
     Route: 048
     Dates: start: 200108, end: 200807
  2. FOSAMAX [Suspect]
     Indication: OSTEOPENIA
     Dosage: 10 MG, QD
     Route: 048
  3. FOSAMAX [Suspect]
     Indication: OSTEOPOROSIS
     Dosage: 70 MG, QW
     Route: 048
     Dates: start: 2008, end: 2010
  4. HYDROCHLOROTHIAZIDE [Concomitant]
     Indication: HYPERTENSION
     Dosage: UNK
     Dates: end: 200712
  5. DETROL [Concomitant]
     Indication: URINARY INCONTINENCE
     Dosage: 2 MG, BID
  6. LOTENSIN HCT [Concomitant]
     Indication: HYPERTENSION
     Dosage: 1 DF, QD
  7. CITRACAL + D [Concomitant]
     Indication: OSTEOPOROSIS
     Dosage: UNK
  8. ALENDRONATE SODIUM [Suspect]
     Indication: OSTEOPOROSIS
     Dosage: 70 MG, QW
     Dates: start: 200808, end: 20101228

REACTIONS (26)
  - Femur fracture [Unknown]
  - Intramedullary rod insertion [Not Recovered/Not Resolved]
  - Packed red blood cell transfusion [Unknown]
  - Tibia fracture [Unknown]
  - Fall [Unknown]
  - Low turnover osteopathy [Unknown]
  - Fracture nonunion [Not Recovered/Not Resolved]
  - Hypercholesterolaemia [Unknown]
  - Renal failure chronic [Not Recovered/Not Resolved]
  - Hypertonic bladder [Unknown]
  - Breast lump removal [Unknown]
  - Urinary tract infection [Unknown]
  - Osteoarthritis [Unknown]
  - Fall [Unknown]
  - Ligament sprain [Unknown]
  - Meniscus injury [Unknown]
  - Fibula fracture [Unknown]
  - Carpal tunnel syndrome [Unknown]
  - Tinea pedis [Unknown]
  - Blood 25-hydroxycholecalciferol decreased [Unknown]
  - Urinary tract infection [Unknown]
  - Thyroid disorder [Unknown]
  - Impaired healing [Unknown]
  - Muscular weakness [Unknown]
  - Hypertriglyceridaemia [Unknown]
  - Alopecia [Unknown]
